FAERS Safety Report 6062497-3 (Version None)
Quarter: 2009Q1

REPORT INFORMATION
  Report Type: 
  Country: None (occurrence: None)
  Receive Date: 20090203
  Receipt Date: 20090121
  Transmission Date: 20090719
  Serious: Yes (Death)
  Sender: FDA-Public Use
  Company Number: US-JNJFOC-20090107104

PATIENT
  Sex: Female
  Weight: 52.16 kg

DRUGS (18)
  1. DURAGESIC-100 [Suspect]
     Indication: DRUG USE FOR UNKNOWN INDICATION
     Route: 062
  2. MORPHINE [Concomitant]
     Indication: DRUG USE FOR UNKNOWN INDICATION
  3. SALICYLATE [Concomitant]
     Indication: DRUG USE FOR UNKNOWN INDICATION
  4. CITALOPRAM HYDROBROMIDE [Concomitant]
     Indication: DRUG USE FOR UNKNOWN INDICATION
  5. EPHEDRINE [Concomitant]
     Indication: DRUG USE FOR UNKNOWN INDICATION
  6. ATROPINE [Concomitant]
     Indication: DRUG USE FOR UNKNOWN INDICATION
  7. ACCUPRIL [Concomitant]
  8. MAXZIDE [Concomitant]
  9. FOLATE [Concomitant]
  10. PREDNISONE [Concomitant]
  11. PREMARIN [Concomitant]
  12. ZYRTEC [Concomitant]
  13. PLAQUENIL [Concomitant]
  14. PYRIDOXINE [Concomitant]
  15. CALCIUM WITH VITAMIN D [Concomitant]
  16. NAPROXEN [Concomitant]
  17. CONTIN [Concomitant]
  18. CELEXA [Concomitant]

REACTIONS (2)
  - BRONCHOPNEUMONIA [None]
  - CHRONIC OBSTRUCTIVE PULMONARY DISEASE [None]
